FAERS Safety Report 4874879-3 (Version None)
Quarter: 2006Q1

REPORT INFORMATION
  Report Type: 
  Country: None (occurrence: None)
  Receive Date: 20060105
  Receipt Date: 20051223
  Transmission Date: 20060701
  Serious: Yes (Other)
  Sender: FDA-Public Use
  Company Number: 2005157406

PATIENT
  Age: 44 Year
  Sex: Female

DRUGS (16)
  1. LYRICA [Suspect]
     Indication: NEURALGIA
     Dosage: 200 MG (100 MG, 2 IN 1 D)
     Dates: start: 20051005, end: 20051201
  2. MORPHINE SULFATE [Concomitant]
  3. BACLOFEN [Concomitant]
  4. DILAUDID [Concomitant]
  5. ATIVAN [Concomitant]
  6. CLONIDINE [Concomitant]
  7. TOPROL-XL [Concomitant]
  8. PREDNISONE [Concomitant]
  9. REMICADE [Concomitant]
  10. METHOTREXATE [Concomitant]
  11. BENADRYL [Concomitant]
  12. IBUPROFEN [Concomitant]
  13. CLARITIN [Concomitant]
  14. PEPCID [Concomitant]
  15. CALCIUM (CALCIUM) [Concomitant]
  16. MAGNESIUM (MAGNESIUM) [Concomitant]

REACTIONS (8)
  - CHILD NEGLECT [None]
  - JOINT SPRAIN [None]
  - NERVOUS SYSTEM DISORDER [None]
  - OVERDOSE [None]
  - SELF-MEDICATION [None]
  - SLEEP WALKING [None]
  - SOMNOLENCE [None]
  - TREATMENT NONCOMPLIANCE [None]
